FAERS Safety Report 4653407-1 (Version None)
Quarter: 2005Q2

REPORT INFORMATION
  Report Type: 
  Country: None (occurrence: None)
  Receive Date: 20050505
  Receipt Date: 20050421
  Transmission Date: 20051028
  Serious: Yes (Hospitalization)
  Sender: FDA-Public Use
  Company Number: BE-JNJFOC-20050405496

PATIENT
  Age: 69 Year
  Sex: Male

DRUGS (9)
  1. INFLIXIMAB [Suspect]
     Indication: RHEUMATOID ARTHRITIS
     Dosage: 14.5 MONTHS.
     Route: 042
  2. LEDERTREXATE [Concomitant]
     Indication: RHEUMATOID ARTHRITIS
     Route: 049
  3. FOLIC ACID [Concomitant]
     Route: 065
  4. PREDNISOLONE [Concomitant]
     Route: 065
  5. INDOCID 75 [Concomitant]
     Route: 065
  6. ADALAT [Concomitant]
     Indication: HYPERTENSION
     Route: 065
  7. MODURETIC 5-50 [Concomitant]
     Route: 065
  8. MODURETIC 5-50 [Concomitant]
     Route: 065
  9. ZANTAC [Concomitant]
     Route: 065

REACTIONS (6)
  - ARTHRITIS BACTERIAL [None]
  - CHILLS [None]
  - HAEMATEMESIS [None]
  - INFLAMMATION [None]
  - LOCALISED INFECTION [None]
  - VOMITING [None]
